FAERS Safety Report 8533386-7 (Version None)
Quarter: 2012Q3

REPORT INFORMATION
  Report Type: 
  Country: None (occurrence: None)
  Receive Date: 20120724
  Receipt Date: 20120720
  Transmission Date: 20120928
  Serious: Yes (Other)
  Sender: FDA-Public Use
  Company Number: PHEH2012US014284

PATIENT
  Sex: Female

DRUGS (1)
  1. DIOVAN [Suspect]
     Dosage: 320 MG, QD

REACTIONS (3)
  - BONE MARROW FAILURE [None]
  - POLYCYTHAEMIA VERA [None]
  - MYELOFIBROSIS [None]
